FAERS Safety Report 6479502-2 (Version None)
Quarter: 2009Q4

REPORT INFORMATION
  Report Type: 
  Country: None (occurrence: None)
  Receive Date: 20091207
  Receipt Date: 20091207
  Transmission Date: 20100525
  Serious: Yes (Other)
  Sender: FDA-Public Use
  Company Number: None

PATIENT
  Sex: Female
  Weight: 58.9676 kg

DRUGS (8)
  1. RECLAST [Suspect]
     Indication: OSTEOPOROSIS
     Dosage: 5M Q12MONTHS IV
     Route: 042
     Dates: start: 20080930, end: 20090930
  2. PLAQUENIL [Concomitant]
  3. NEXIUM [Concomitant]
  4. THYROID TAB [Concomitant]
  5. VITAMIN D [Concomitant]
  6. CLONAZEPAM [Concomitant]
  7. HALCION [Concomitant]
  8. SCOPOLAMINE [Concomitant]

REACTIONS (1)
  - TOOTH ABSCESS [None]
